FAERS Safety Report 8584849-X (Version None)
Quarter: 2012Q3

REPORT INFORMATION
  Report Type: 
  Country: None (occurrence: None)
  Receive Date: 20120810
  Receipt Date: 20120803
  Transmission Date: 20120928
  Serious: Yes (Hospitalization)
  Sender: FDA-Public Use
  Company Number: CH-JNJFOC-20120712040

PATIENT
  Age: 90 Year
  Sex: Female

DRUGS (8)
  1. DIAMICRON [Concomitant]
     Route: 048
     Dates: end: 20120601
  2. ZOLDORM [Concomitant]
     Dosage: 0.5 OF 10 MG PER DAY
     Route: 048
  3. PLAVIX [Concomitant]
     Route: 048
  4. GALANTAMINE HYDROBROMIDE [Suspect]
     Indication: PRODUCT USED FOR UNKNOWN INDICATION
     Route: 065
     Dates: start: 20120609, end: 20120609
  5. TENORMIN [Concomitant]
     Route: 048
  6. FEMARA [Concomitant]
     Route: 048
  7. ENALAPRIL MALEATE [Concomitant]
     Route: 048
  8. GALANTAMINE HYDROBROMIDE [Suspect]
     Dosage: FOR 4 WEEKS
     Route: 065
     Dates: start: 20120501

REACTIONS (6)
  - HEADACHE [None]
  - GAIT DISTURBANCE [None]
  - NAUSEA [None]
  - VOMITING [None]
  - HYPERTENSION [None]
  - DIZZINESS [None]
